FAERS Safety Report 7652059 (Version 4)
Quarter: 2013Q4

REPORT INFORMATION
  Report Type: Spontaneous
  Country: US (occurrence: US)
  Receive Date: 20101101
  Receipt Date: 20131217
  Transmission Date: 20140711
  Serious: Yes (Hospitalization, Other)
  Sender: FDA-Public Use
  Company Number: US-BAYER-201038501NA

PATIENT
  Age: 31 Year
  Sex: Female
  Weight: 63.49 kg

DRUGS (2)
  1. YASMIN [Suspect]
     Indication: PRODUCT USED FOR UNKNOWN INDICATION
     Dosage: UNK
     Route: 048
     Dates: start: 2002, end: 2009
  2. VICODIN [Concomitant]

REACTIONS (4)
  - Gallbladder injury [Unknown]
  - Pain [Unknown]
  - Biliary dyskinesia [Unknown]
  - Cholecystitis chronic [None]
